FAERS Safety Report 5713848-8 (Version None)
Quarter: 2008Q2

REPORT INFORMATION
  Report Type: 
  Country: None (occurrence: None)
  Receive Date: 20080421
  Receipt Date: 20080411
  Transmission Date: 20081010
  Serious: Yes (Hospitalization)
  Sender: FDA-Public Use
  Company Number: B0516206A

PATIENT
  Age: 40 Year
  Sex: Male

DRUGS (6)
  1. ADVAIR DISKUS 100/50 [Suspect]
  2. FLUTICASONE PROPIONATE [Suspect]
  3. KALETRA [Suspect]
     Indication: HIV INFECTION
     Dosage: ORAL
     Route: 048
  4. VALACYCLOVIR [Concomitant]
  5. MONTELUKAST SODIUM [Concomitant]
  6. TRUVADA [Concomitant]

REACTIONS (5)
  - ADRENAL INSUFFICIENCY [None]
  - ALTERED STATE OF CONSCIOUSNESS [None]
  - DRUG INTERACTION [None]
  - MUSCULAR WEAKNESS [None]
  - SWELLING FACE [None]
